FAERS Safety Report 25897306 (Version 1)
Quarter: 2025Q4

REPORT INFORMATION
  Report Type: Spontaneous
  Country: EU (occurrence: EU)
  Receive Date: 20251008
  Receipt Date: 20251008
  Transmission Date: 20260118
  Serious: Yes (Other)
  Sender: ABBVIE
  Company Number: None

PATIENT
  Age: 31 Year
  Sex: Female
  Weight: 53 kg

DRUGS (6)
  1. ADALIMUMAB [Suspect]
     Active Substance: ADALIMUMAB
     Indication: Rheumatoid arthritis
     Route: 058
  2. HYRIMOZ [Suspect]
     Active Substance: ADALIMUMAB-ADAZ
     Indication: Rheumatoid arthritis
     Dosage: 1 SUBCUTANEOUS INJECTION EVERY 14 DAYS?FORM STRENGTH: 40 MILLIGRAM?DOSE FORM: SOLUTION FOR INJECT...
     Route: 058
     Dates: start: 20241025, end: 20250729
  3. HYRIMOZ [Suspect]
     Active Substance: ADALIMUMAB-ADAZ
     Indication: Rheumatoid arthritis
     Dosage: 1 SUBCUTANEOUS INJECTION EVERY 14 DAYS?FORM STRENGTH: 40 MILLIGRAM?DOSE FORM: SOLUTION FOR INJECT...
     Route: 058
     Dates: start: 20241025, end: 20250729
  4. HYRIMOZ [Suspect]
     Active Substance: ADALIMUMAB-ADAZ
     Indication: Rheumatoid arthritis
     Dosage: 1 SUBCUTANEOUS INJECTION EVERY 14 DAYS?FORM STRENGTH: 40 MILLIGRAM?DOSE FORM: SOLUTION FOR INJECT...
     Route: 058
     Dates: start: 20241025, end: 20250729
  5. HYRIMOZ [Suspect]
     Active Substance: ADALIMUMAB-ADAZ
     Indication: Rheumatoid arthritis
     Dosage: 1 SUBCUTANEOUS INJECTION EVERY 14 DAYS?FORM STRENGTH: 40 MILLIGRAM?DOSE FORM: SOLUTION FOR INJECT...
     Route: 058
     Dates: start: 20241025, end: 20250729
  6. HYRIMOZ [Suspect]
     Active Substance: ADALIMUMAB-ADAZ
     Indication: Rheumatoid arthritis
     Dosage: 1 SUBCUTANEOUS INJECTION EVERY 14 DAYS?FORM STRENGTH: 40 MILLIGRAM?DOSE FORM: SOLUTION FOR INJECT...
     Route: 058
     Dates: start: 20241025, end: 20250729

REACTIONS (8)
  - Product substitution issue [Recovered/Resolved]
  - Vulvovaginal candidiasis [Recovered/Resolved]
  - Tonsillitis [Recovered/Resolved]
  - Tonsillitis [Recovered/Resolved]
  - Vulvovaginal candidiasis [Recovered/Resolved]
  - Tonsillitis [Recovered/Resolved]
  - Vulvovaginal candidiasis [Recovered/Resolved]
  - Vulvovaginal candidiasis [Recovered/Resolved]

NARRATIVE: CASE EVENT DATE: 20241123
